FAERS Safety Report 6043658-6 (Version None)
Quarter: 2009Q1

REPORT INFORMATION
  Report Type: 
  Country: None (occurrence: None)
  Receive Date: 20090120
  Receipt Date: 20090109
  Transmission Date: 20090719
  Serious: Yes (Hospitalization)
  Sender: FDA-Public Use
  Company Number: JP-BRISTOL-MYERS SQUIBB COMPANY-14474373

PATIENT
  Age: 86 Year
  Sex: Male

DRUGS (5)
  1. ABILIFY [Suspect]
     Indication: DEPRESSION
     Dosage: 15MAR07-UNKNOWN,3MG;09APR07-SEP07,6MG.
     Route: 048
     Dates: start: 20070315, end: 20070901
  2. RESLIN [Concomitant]
  3. SEDIEL [Concomitant]
     Dates: start: 20070409
  4. RIVOTRIL [Concomitant]
     Dates: start: 20070507
  5. ARICEPT [Concomitant]
     Dates: start: 20071015

REACTIONS (8)
  - ABNORMAL DREAMS [None]
  - AKATHISIA [None]
  - FRACTURE [None]
  - HYPOAESTHESIA [None]
  - INCREASED APPETITE [None]
  - IRRITABILITY [None]
  - OSTEOPOROSIS [None]
  - RESTLESSNESS [None]
